FAERS Safety Report 21213807 (Version 3)
Quarter: 2024Q1

REPORT INFORMATION
  Report Type: Spontaneous
  Country: US (occurrence: US)
  Receive Date: 20220816
  Receipt Date: 20240206
  Transmission Date: 20240409
  Serious: No
  Sender: FDA-Public Use
  Company Number: US-SA-SAC20220810002073

PATIENT
  Sex: Female

DRUGS (7)
  1. DUPIXENT [Suspect]
     Active Substance: DUPILUMAB
     Indication: Dermatitis atopic
     Dosage: 300 MG, QOW
     Route: 058
     Dates: start: 20210723
  2. DUPIXENT [Suspect]
     Active Substance: DUPILUMAB
     Dosage: 300 MG, QOW
     Route: 058
  3. BLACK COHOSH [CIMICIFUGA RACEMOSA RHIZOME;CIMICIFUGA RACEMOSA ROOT] [Concomitant]
     Dosage: UNK
  4. ESTROGEL [Concomitant]
     Active Substance: ESTRADIOL
     Dosage: UNK
  5. ESTROGEL [Concomitant]
     Active Substance: ESTRADIOL
  6. GINKGO [Concomitant]
     Active Substance: GINKGO
     Dosage: UNK
  7. BLACK COHOSH [Concomitant]
     Active Substance: BLACK COHOSH

REACTIONS (3)
  - COVID-19 [Unknown]
  - Drug ineffective [Unknown]
  - Product dose omission in error [Unknown]
